FAERS Safety Report 11106871 (Version 3)
Quarter: 2015Q3

REPORT INFORMATION
  Report Type: Not Available
  Country: DE (occurrence: DE)
  Receive Date: 20150512
  Receipt Date: 20150818
  Transmission Date: 20151125
  Serious: Yes (Other)
  Sender: FDA-Public Use
  Company Number: DE-BEH-2015051014

PATIENT
  Age: 54 Year
  Sex: Female
  Weight: 50 kg

DRUGS (12)
  1. PRIVIGEN [Suspect]
     Active Substance: HUMAN IMMUNOGLOBULIN G
     Indication: GUILLAIN-BARRE SYNDROME
     Route: 042
     Dates: start: 20150324
  2. METOPROLOL [Concomitant]
     Active Substance: METOPROLOL
     Dates: start: 20150323
  3. REKAWAN [Concomitant]
     Active Substance: POTASSIUM CHLORIDE
     Dates: start: 20150323
  4. IBUPROFEN. [Concomitant]
     Active Substance: IBUPROFEN
     Indication: PAIN
     Dates: start: 20150323
  5. RAMIPIL [Concomitant]
     Indication: HYPERTENSION
     Dates: start: 20150323
  6. AMLODIPINE [Concomitant]
     Active Substance: AMLODIPINE BESYLATE
     Dates: start: 20150323
  7. HCT [Concomitant]
     Active Substance: HYDROCHLOROTHIAZIDE
     Dates: start: 20150323
  8. VITAMIN B [Concomitant]
     Active Substance: VITAMIN B
     Indication: MALNUTRITION
     Dates: start: 20150323
  9. EBRANTIL [Concomitant]
     Active Substance: URAPIDIL
     Dates: start: 20150323
  10. NOVAMINSULFON [Concomitant]
     Active Substance: METAMIZOLE
     Indication: PAIN
     Dates: start: 20150323
  11. RANITIC [Concomitant]
     Active Substance: RANITIDINE HYDROCHLORIDE
     Indication: GASTRITIS
     Dates: start: 20150323
  12. CLEXANE [Concomitant]
     Active Substance: ENOXAPARIN SODIUM
     Indication: THROMBOSIS PROPHYLAXIS
     Route: 058
     Dates: start: 20150323

REACTIONS (8)
  - Syncope [Recovered/Resolved]
  - Hypotension [Recovered/Resolved]
  - Rash [Recovered/Resolved]
  - Dyspnoea [Recovered/Resolved]
  - Anaphylactic reaction [Recovered/Resolved]
  - Vertigo [Recovered/Resolved]
  - Flushing [Recovered/Resolved]
  - Dizziness [Recovered/Resolved]

NARRATIVE: CASE EVENT DATE: 20150324
